FAERS Safety Report 13159824 (Version 4)
Quarter: 2017Q2

REPORT INFORMATION
  Report Type: Report from Study
  Country: GR (occurrence: GR)
  Receive Date: 20170127
  Receipt Date: 20170411
  Transmission Date: 20170830
  Serious: Yes (Hospitalization)
  Sender: FDA-Public Use
  Company Number: PHHY2016GR176493

PATIENT
  Age: 71 Year
  Sex: Male
  Weight: 98 kg

DRUGS (5)
  1. LCZ696 [Suspect]
     Active Substance: SACUBITRIL\VALSARTAN
     Indication: CARDIAC FAILURE
     Dosage: 50 MG, BID
     Route: 048
     Dates: start: 20161121, end: 20170103
  2. EPLERENONE. [Concomitant]
     Active Substance: EPLERENONE
     Indication: PRODUCT USED FOR UNKNOWN INDICATION
     Dosage: 25 MG, QD
     Route: 065
  3. FUROSEMIDE. [Concomitant]
     Active Substance: FUROSEMIDE
     Indication: PRODUCT USED FOR UNKNOWN INDICATION
     Dosage: 40 MG, TID
     Route: 065
  4. INSULIN [Concomitant]
     Active Substance: INSULIN NOS
     Indication: DIABETES MELLITUS
     Dosage: UNK
     Route: 065
  5. METOLAZONE. [Concomitant]
     Active Substance: METOLAZONE
     Indication: PRODUCT USED FOR UNKNOWN INDICATION
     Dosage: 2.5 OT, BIW
     Route: 065

REACTIONS (10)
  - Cardiorenal syndrome [Recovering/Resolving]
  - Oedema [Unknown]
  - Cardiac failure [Recovered/Resolved with Sequelae]
  - Blood urea increased [Unknown]
  - Fatigue [Unknown]
  - Blood creatinine increased [Unknown]
  - Dyspnoea [Unknown]
  - Chronic kidney disease [Recovered/Resolved with Sequelae]
  - Urine output decreased [Unknown]
  - Oedema peripheral [Unknown]

NARRATIVE: CASE EVENT DATE: 20161215
